FAERS Safety Report 19879510 (Version 1)
Quarter: 2021Q3

REPORT INFORMATION
  Report Type: Report from Study
  Country: DE (occurrence: DE)
  Receive Date: 20210924
  Receipt Date: 20210924
  Transmission Date: 20211014
  Serious: Yes (Other)
  Sender: FDA-Public Use
  Company Number: DE-EMD SERONO-9262982

PATIENT
  Age: 58 Year
  Sex: Female

DRUGS (9)
  1. MAVENCLAD [Suspect]
     Active Substance: CLADRIBINE
     Route: 048
     Dates: start: 202006
  2. TIZANIDINE. [Concomitant]
     Active Substance: TIZANIDINE
     Indication: PAIN
     Dates: start: 202012, end: 202107
  3. MAVENCLAD [Suspect]
     Active Substance: CLADRIBINE
     Route: 048
     Dates: start: 202005
  4. MAVENCLAD [Suspect]
     Active Substance: CLADRIBINE
     Indication: RELAPSING-REMITTING MULTIPLE SCLEROSIS
     Route: 048
     Dates: start: 201904
  5. MAVENCLAD [Suspect]
     Active Substance: CLADRIBINE
     Route: 048
     Dates: start: 201905
  6. L?THYROXINE [LEVOTHYROXINE] [Concomitant]
     Active Substance: LEVOTHYROXINE
     Indication: HYPOTHYROIDISM
  7. AGOMAVAL [Concomitant]
     Indication: PRODUCT USED FOR UNKNOWN INDICATION
  8. SATIVEX [Concomitant]
     Active Substance: NABIXIMOLS
     Indication: PAIN
     Dosage: FOUR TO SIX SPRAYS DURING THE DAY
     Dates: start: 202107
  9. CARBAMAZEPINE. [Concomitant]
     Active Substance: CARBAMAZEPINE
     Indication: PRODUCT USED FOR UNKNOWN INDICATION
     Dosage: MORNING 37.5 MG AND 50 MG AT NIGHT

REACTIONS (10)
  - Oral mucosal blistering [Unknown]
  - Tooth abscess [Not Recovered/Not Resolved]
  - Impaired healing [Not Recovered/Not Resolved]
  - Blister rupture [Unknown]
  - Nodule [Unknown]
  - Erythema nodosum [Unknown]
  - Wound infection staphylococcal [Recovered/Resolved]
  - Skin wound [Unknown]
  - Lymphocyte count decreased [Unknown]
  - Gingival blister [Unknown]

NARRATIVE: CASE EVENT DATE: 2019
